FAERS Safety Report 5712055-2 (Version None)
Quarter: 2008Q2

REPORT INFORMATION
  Report Type: 
  Country: None (occurrence: None)
  Receive Date: 20080418
  Receipt Date: 20080331
  Transmission Date: 20081010
  Serious: Yes (Other)
  Sender: FDA-Public Use
  Company Number: 2008US000743

PATIENT
  Age: 4 Year
  Sex: Male

DRUGS (9)
  1. PROTOPIC [Suspect]
     Indication: DERMATITIS ATOPIC
     Dosage: BID
     Dates: start: 20040909
  2. ELIDEL [Suspect]
     Indication: RASH
     Dates: start: 20040716
  3. SINGULAIR [Concomitant]
  4. ALLEGRA [Concomitant]
  5. LOCOID [Concomitant]
  6. AVEENO ANTI-ITCH (CAMPHOR) [Concomitant]
  7. ZOFRAN [Concomitant]
  8. BACTRIM [Concomitant]
  9. INTERFERON (INTERFERON) [Concomitant]

REACTIONS (12)
  - ALANINE AMINOTRANSFERASE DECREASED [None]
  - ASPARTATE AMINOTRANSFERASE INCREASED [None]
  - BLOOD LACTATE DEHYDROGENASE INCREASED [None]
  - CARBON DIOXIDE DECREASED [None]
  - ECCHYMOSIS [None]
  - HAEMOGLOBIN DECREASED [None]
  - LYMPHOCYTE PERCENTAGE INCREASED [None]
  - MALIGNANT MELANOMA STAGE III [None]
  - NEUTROPHIL COUNT DECREASED [None]
  - PCO2 DECREASED [None]
  - PLATELET COUNT INCREASED [None]
  - POST PROCEDURAL COMPLICATION [None]
